FAERS Safety Report 11926200 (Version 1)
Quarter: 2016Q1

REPORT INFORMATION
  Report Type: Spontaneous
  Country: BR (occurrence: BR)
  Receive Date: 20160119
  Receipt Date: 20160119
  Transmission Date: 20160526
  Serious: Yes (Hospitalization, Other)
  Sender: FDA-Public Use
  Company Number: BR-ASTRAZENECA-2015SE87743

PATIENT
  Age: 36 Year
  Sex: Female
  Weight: 85 kg

DRUGS (8)
  1. CLARITHROMYCIN. [Interacting]
     Active Substance: CLARITHROMYCIN
     Indication: GASTRITIS
     Dosage: 4 TABLES/BID (NON AZ PRODUCT)
     Route: 048
     Dates: start: 2015, end: 2015
  2. AMOXICILLIN. [Interacting]
     Active Substance: AMOXICILLIN
     Indication: HELICOBACTER INFECTION
     Dosage: 4 TABLES/BID (NON AZ PRODUCT)
     Route: 048
     Dates: start: 2015, end: 2015
  3. OMEPRAMIX (OMEPRAZOLE) [Interacting]
     Active Substance: AMOXICILLIN\CLARITHROMYCIN\OMEPRAZOLE
     Indication: GASTRITIS
     Dosage: 4 TABLES/BID
     Route: 048
     Dates: start: 2015, end: 2015
  4. OMEPRAMIX (OMEPRAZOLE) [Interacting]
     Active Substance: AMOXICILLIN\CLARITHROMYCIN\OMEPRAZOLE
     Indication: HELICOBACTER INFECTION
     Dosage: 4 TABLES/BID
     Route: 048
     Dates: start: 2015, end: 2015
  5. CLARITHROMYCIN. [Interacting]
     Active Substance: CLARITHROMYCIN
     Indication: HELICOBACTER INFECTION
     Dosage: 4 TABLES/BID (NON AZ PRODUCT)
     Route: 048
     Dates: start: 2015, end: 2015
  6. UNKNOWN MULTIVITAMIN [Concomitant]
     Active Substance: VITAMINS
     Indication: SUPPLEMENTATION THERAPY
     Route: 048
     Dates: start: 2015
  7. SYMBICORT [Suspect]
     Active Substance: BUDESONIDE\FORMOTEROL FUMARATE DIHYDRATE
     Indication: ASTHMA
     Dosage: 320/9 MCG,TWO TIMES A DAY
     Route: 055
     Dates: start: 20150803
  8. AMOXICILLIN. [Interacting]
     Active Substance: AMOXICILLIN
     Indication: GASTRITIS
     Dosage: 4 TABLES/BID (NON AZ PRODUCT)
     Route: 048
     Dates: start: 2015, end: 2015

REACTIONS (8)
  - Exposure during pregnancy [Recovered/Resolved]
  - Fatigue [Not Recovered/Not Resolved]
  - Pulmonary oedema [Recovered/Resolved]
  - Influenza [Recovered/Resolved]
  - Asthma [None]
  - Caesarean section [None]
  - Drug interaction [Recovered/Resolved]
  - Pregnancy after post coital contraception [None]

NARRATIVE: CASE EVENT DATE: 2015
